FAERS Safety Report 10303560 (Version 1)
Quarter: 2014Q3

REPORT INFORMATION
  Report Type: Spontaneous
  Country: US (occurrence: US)
  Receive Date: 20140714
  Receipt Date: 20140714
  Transmission Date: 20150326
  Serious: Yes (Hospitalization, Other)
  Sender: FDA-Public Use
  Company Number: US-RB PHARMACEUTICALS LIMITED-RB-69362-2014

PATIENT

DRUGS (1)
  1. SUBOXONE [Suspect]
     Active Substance: BUPRENORPHINE HYDROCHLORIDE\NALOXONE HYDROCHLORIDE
     Indication: PRODUCT USED FOR UNKNOWN INDICATION
     Dosage: UNK
     Route: 065

REACTIONS (13)
  - Fall [Unknown]
  - Unevaluable event [Unknown]
  - Back injury [Unknown]
  - Viral infection [None]
  - Feeling abnormal [Unknown]
  - Musculoskeletal stiffness [None]
  - Hyponatraemic syndrome [Recovered/Resolved]
  - Decreased appetite [Unknown]
  - Memory impairment [Unknown]
  - Hypophagia [None]
  - Musculoskeletal stiffness [Not Recovered/Not Resolved]
  - Confusional state [Unknown]
  - Fatigue [Unknown]
